FAERS Safety Report 6994374-5 (Version None)
Quarter: 2010Q3

REPORT INFORMATION
  Report Type: 
  Country: None (occurrence: None)
  Receive Date: 20100917
  Receipt Date: 20100909
  Transmission Date: 20110219
  Serious: Yes (Other)
  Sender: FDA-Public Use
  Company Number: US-AMGEN-KDL437071

PATIENT
  Sex: Male

DRUGS (6)
  1. NPLATE [Suspect]
     Indication: IDIOPATHIC THROMBOCYTOPENIC PURPURA
     Dates: start: 20081219
  2. BACTRIM [Suspect]
  3. CORTICOSTEROIDS [Concomitant]
     Dates: start: 20040721
  4. AZATHIOPRINE [Concomitant]
     Dates: start: 20080404
  5. VINCRISTINE [Concomitant]
  6. IMMU-G [Concomitant]
     Route: 042
     Dates: start: 20040721

REACTIONS (1)
  - RASH [None]
